FAERS Safety Report 5030542-X (Version None)
Quarter: 2006Q2

REPORT INFORMATION
  Report Type: 
  Country: None (occurrence: None)
  Receive Date: 20060615
  Receipt Date: 20060612
  Transmission Date: 20061013
  Serious: Yes (Hospitalization, Disabling, Other)
  Sender: FDA-Public Use
  Company Number: HQWYE512123MAY06

PATIENT
  Age: 29 Year
  Sex: Female

DRUGS (9)
  1. ADVIL [Suspect]
     Indication: DYSMENORRHOEA
  2. ADVIL [Suspect]
     Indication: HEADACHE
  3. ADVIL [Suspect]
     Indication: DYSMENORRHOEA
  4. ADVIL [Suspect]
     Indication: HEADACHE
  5. ADVIL [Suspect]
     Indication: DYSMENORRHOEA
  6. ADVIL [Suspect]
     Indication: HEADACHE
  7. FLOVENT [Concomitant]
  8. SEREVENT [Concomitant]
  9. ACCOLATE [Concomitant]

REACTIONS (3)
  - ASTHMA [None]
  - CONDITION AGGRAVATED [None]
  - DRUG HYPERSENSITIVITY [None]
